FAERS Safety Report 8413366-2 (Version None)
Quarter: 2012Q2

REPORT INFORMATION
  Report Type: 
  Country: None (occurrence: None)
  Receive Date: 20120605
  Receipt Date: 20120530
  Transmission Date: 20120825
  Serious: Yes (Life-Threatening)
  Sender: FDA-Public Use
  Company Number: FR-CELGENEUS-056-C5013-12030078

PATIENT
  Sex: Female
  Weight: 62 kg

DRUGS (22)
  1. ASPIRIN [Concomitant]
     Dosage: 75 MILLIGRAM
     Route: 048
     Dates: start: 20070301
  2. LENALIDOMIDE [Suspect]
     Indication: MULTIPLE MYELOMA
     Dosage: 25 MILLIGRAM
     Route: 048
     Dates: start: 20100421
  3. DEXAMETHASONE [Suspect]
     Indication: MULTIPLE MYELOMA
     Dosage: 40 MILLIGRAM
     Route: 065
     Dates: start: 20100421
  4. FLUTICASONE PROPIONATE/SALMETEROL [Concomitant]
     Indication: ASTHMA
     Dosage: 1000 MICROGRAM
     Route: 055
     Dates: start: 20091201
  5. KESTINLYO [Concomitant]
     Indication: ASTHMA
     Dosage: 10 MILLIGRAM
     Route: 048
     Dates: start: 20090501
  6. HUMALOG [Concomitant]
     Route: 058
     Dates: start: 20110101
  7. ACETAMINOPHEN [Concomitant]
     Indication: WRIST FRACTURE
     Route: 048
     Dates: start: 20111201, end: 20120201
  8. DEXAMETHASONE [Suspect]
     Dosage: 20 MILLIGRAM
     Route: 065
     Dates: start: 20120111, end: 20120208
  9. ACETAMINOPHEN AND TRAMADOL HCL [Concomitant]
     Indication: GENERAL PHYSICAL HEALTH DETERIORATION
     Route: 048
     Dates: start: 20090101
  10. TRAMADOL HCL [Concomitant]
     Indication: NEURALGIA
     Dosage: 200 MILLIGRAM
     Route: 048
     Dates: start: 20111116
  11. LYRICA [Concomitant]
     Indication: NEURALGIA
     Dosage: 50 MILLIGRAM
     Route: 048
     Dates: start: 20111011
  12. PYOSTACINE [Concomitant]
     Route: 048
     Dates: start: 20120201, end: 20120202
  13. VERAPAMIL HCL [Concomitant]
     Dosage: 240 MILLIGRAM
     Route: 048
     Dates: start: 20080301
  14. NASACORT [Concomitant]
     Indication: ASTHMA
     Dosage: 110 MICROGRAM
     Route: 055
  15. FOLIC ACID [Concomitant]
     Dosage: 10 MILLIGRAM
     Route: 048
     Dates: start: 20100519
  16. VOLTAREN [Concomitant]
     Indication: PROPHYLAXIS
     Route: 061
     Dates: start: 19900101
  17. LENALIDOMIDE [Suspect]
     Dosage: 15 MILLIGRAM
     Route: 048
     Dates: start: 20120111, end: 20120131
  18. ALDACTAZINE [Concomitant]
     Dosage: 25 MILLIGRAM
     Route: 048
     Dates: start: 20100501
  19. PRAVASTATIN [Concomitant]
     Dosage: 20 MILLIGRAM
     Route: 048
     Dates: start: 20060101
  20. SINGULAIR [Concomitant]
     Indication: ASTHMA
     Dosage: 5 MILLIGRAM
     Route: 048
     Dates: start: 20080101
  21. VENTOLIN [Concomitant]
     Indication: ASTHMA
     Dosage: 600 MICROGRAM
     Route: 055
  22. PRIMALAN [Concomitant]
     Indication: PRURITUS
     Route: 048

REACTIONS (1)
  - SMALL INTESTINE CARCINOMA [None]
